FAERS Safety Report 19751087 (Version 1)
Quarter: 2021Q3

REPORT INFORMATION
  Report Type: Spontaneous
  Country: NO (occurrence: NO)
  Receive Date: 20210826
  Receipt Date: 20210826
  Transmission Date: 20211014
  Serious: Yes (Hospitalization)
  Sender: FDA-Public Use
  Company Number: NO-ASTRAZENECA-2021A691693

PATIENT
  Age: 43 Year
  Sex: Male
  Weight: 75 kg

DRUGS (2)
  1. SEROQUEL [Suspect]
     Active Substance: QUETIAPINE FUMARATE
     Indication: ANXIETY
     Dosage: 100.0MG UNKNOWN
     Route: 048
     Dates: start: 2017, end: 20180917
  2. SEROQUEL [Suspect]
     Active Substance: QUETIAPINE FUMARATE
     Indication: INSOMNIA
     Dosage: 100.0MG UNKNOWN
     Route: 048
     Dates: start: 2017, end: 20180917

REACTIONS (3)
  - Dehydration [Unknown]
  - Diarrhoea [Unknown]
  - Proctitis [Recovered/Resolved]

NARRATIVE: CASE EVENT DATE: 201809
